FAERS Safety Report 4365897-2 (Version None)
Quarter: 2004Q2

REPORT INFORMATION
  Report Type: 
  Country: None (occurrence: None)
  Receive Date: 20040520
  Receipt Date: 20040507
  Transmission Date: 20050107
  Serious: Yes (Hospitalization, Congenital Anomaly)
  Sender: FDA-Public Use
  Company Number: NO-JNJFOC-20040301740

PATIENT
  Weight: 4.9 kg

DRUGS (5)
  1. RISPERDAL [Suspect]
     Indication: DRUG USE FOR UNKNOWN INDICATION
     Dosage: 6MG, IN 1 DAY, INTRAUTERINE
     Route: 015
  2. IMOVANE (ZOPICLONE) TABLETS [Suspect]
     Indication: DRUG USE FOR UNKNOWN INDICATION
     Dosage: INTRA-UTERNINE
     Route: 015
  3. VIVAL (DIAZEPAM) TABLETS [Suspect]
     Indication: DRUG USE FOR UNKNOWN INDICATION
     Dosage: INTRA-UTERNINE
     Route: 015
  4. INSULIN [Concomitant]
  5. ANAETHESIA (ANAESTHETICS) [Concomitant]

REACTIONS (11)
  - APGAR SCORE LOW [None]
  - BLOOD GLUCOSE INCREASED [None]
  - CAESAREAN SECTION [None]
  - CLEFT LIP AND PALATE [None]
  - CONGENITAL ANOMALY [None]
  - CONVULSION NEONATAL [None]
  - DRUG EXPOSURE DURING PREGNANCY [None]
  - DRUG INTERACTION [None]
  - NEONATAL DISORDER [None]
  - PREGNANCY [None]
  - THORACIC VERTEBRA INJURY [None]
